FAERS Safety Report 23823521 (Version 1)
Quarter: 2024Q2

REPORT INFORMATION
  Report Type: Other
  Country: CA (occurrence: None)
  Receive Date: 20240507
  Receipt Date: 20240507
  Transmission Date: 20240715
  Serious: Yes (Other)
  Sender: FDA-Public Use
  Company Number: CA-ROCHE-3548166

PATIENT
  Sex: Female

DRUGS (3)
  1. OCREVUS [Suspect]
     Active Substance: OCRELIZUMAB
     Indication: Relapsing-remitting multiple sclerosis
     Dosage: MORE DOSAGE INFORMATION IS 300 MG AT DAY 0 AND 14, THEN 600 MG EVERY 6 MONTHS
     Route: 042
     Dates: start: 20200716
  2. OCREVUS [Suspect]
     Active Substance: OCRELIZUMAB
     Route: 042
  3. LITHIUM CARBONATE [Suspect]
     Active Substance: LITHIUM CARBONATE
     Indication: Post-traumatic stress disorder
     Route: 065

REACTIONS (10)
  - Fall [Unknown]
  - Muscle disorder [Recovering/Resolving]
  - Constipation [Recovered/Resolved]
  - Toxicity to various agents [Not Recovered/Not Resolved]
  - Thirst [Not Recovered/Not Resolved]
  - Post-traumatic stress disorder [Not Recovered/Not Resolved]
  - Fibula fracture [Recovering/Resolving]
  - Hyperphagia [Not Recovered/Not Resolved]
  - Tibia fracture [Recovering/Resolving]
  - Diabetes insipidus [Unknown]
